FAERS Safety Report 16906483 (Version 2)
Quarter: 2020Q2

REPORT INFORMATION
  Report Type: Spontaneous
  Country: JP (occurrence: JP)
  Receive Date: 20191011
  Receipt Date: 20200529
  Transmission Date: 20200713
  Serious: Yes (Hospitalization)
  Sender: FDA-Public Use
  Company Number: JP-TAKEDA-2019TJP023284

PATIENT
  Age: 8 Decade
  Sex: Female

DRUGS (1)
  1. ENTYVIO [Suspect]
     Active Substance: VEDOLIZUMAB
     Indication: COLITIS ULCERATIVE
     Dosage: 300 MILLIGRAM
     Route: 050
     Dates: start: 201906

REACTIONS (3)
  - Abscess [Unknown]
  - Condition aggravated [Unknown]
  - Diverticulitis [Unknown]

NARRATIVE: CASE EVENT DATE: 2019
